FAERS Safety Report 7799020-9 (Version None)
Quarter: 2011Q4

REPORT INFORMATION
  Report Type: 
  Country: None (occurrence: None)
  Receive Date: 20111006
  Receipt Date: 20110923
  Transmission Date: 20120403
  Serious: Yes (Hospitalization)
  Sender: FDA-Public Use
  Company Number: US-NOVOPROD-335929

PATIENT
  Sex: Male
  Weight: 25.7 kg

DRUGS (1)
  1. NORDITROPIN FLEXPRO [Suspect]
     Indication: PRODUCT USED FOR UNKNOWN INDICATION
     Dosage: 1.1 MG, QD
     Route: 058
     Dates: start: 20101007

REACTIONS (2)
  - HEADACHE [None]
  - VIRAL MYOSITIS [None]
